FAERS Safety Report 15290493 (Version 1)
Quarter: 2018Q3

REPORT INFORMATION
  Report Type: Spontaneous
  Country: US (occurrence: US)
  Receive Date: 20180817
  Receipt Date: 20180817
  Transmission Date: 20181010
  Serious: Yes (Hospitalization, Other)
  Sender: FDA-Public Use
  Company Number: US-FRESENIUS KABI-FK201808748

PATIENT
  Age: 30 Year
  Sex: Male

DRUGS (5)
  1. INTRALIPID [Suspect]
     Active Substance: EGG PHOSPHOLIPIDS\GLYCERIN\SOYBEAN OIL
     Dosage: 80 GRAM,THRICE A WEEK
     Route: 065
  2. INTRALIPID [Suspect]
     Active Substance: EGG PHOSPHOLIPIDS\GLYCERIN\SOYBEAN OIL
     Dosage: 50 GRAM, TWICE A WEEK
     Route: 065
  3. INTRALIPID [Suspect]
     Active Substance: EGG PHOSPHOLIPIDS\GLYCERIN\SOYBEAN OIL
     Dosage: 80 GRAM, FOUR TIMES A WEEK
     Route: 065
  4. INTRALIPID [Suspect]
     Active Substance: EGG PHOSPHOLIPIDS\GLYCERIN\SOYBEAN OIL
     Indication: PARENTERAL NUTRITION
     Dosage: 50 GRAM,THRICE A WEEK
     Route: 065
  5. INTRALIPID [Suspect]
     Active Substance: EGG PHOSPHOLIPIDS\GLYCERIN\SOYBEAN OIL
     Dosage: 50 GRAM, ONCE EVERY TWO WEEKS
     Route: 065

REACTIONS (4)
  - Pancreatitis acute [Unknown]
  - Weight decreased [Recovering/Resolving]
  - Hypertriglyceridaemia [Recovering/Resolving]
  - Parenteral nutrition associated liver disease [Unknown]

NARRATIVE: CASE EVENT DATE: 201108
